FAERS Safety Report 9465780 (Version 2)
Quarter: 2013Q3

REPORT INFORMATION
  Report Type: Spontaneous
  Country: US (occurrence: US)
  Receive Date: 20130820
  Receipt Date: 20130820
  Transmission Date: 20140515
  Serious: Yes (Other)
  Sender: FDA-Public Use
  Company Number: US-ASTELLAS-2013US003514

PATIENT
  Age: 56 Year
  Sex: Female
  Weight: 74 kg

DRUGS (31)
  1. AMBISOME [Suspect]
     Indication: ZYGOMYCOSIS
     Dosage: UNK
     Route: 042
     Dates: start: 201302
  2. ZOSYN [Concomitant]
     Indication: FEBRILE NEUTROPENIA
     Dosage: UNK
     Route: 042
     Dates: start: 20130130
  3. ZOSYN [Concomitant]
     Indication: COLITIS
  4. TRYPSIN [Concomitant]
     Indication: SKIN DISORDER
     Dosage: UNK
     Route: 061
     Dates: start: 20130214
  5. MEPRON                             /00049601/ [Concomitant]
     Indication: INFECTION PROPHYLAXIS
     Dosage: UNK
     Route: 048
     Dates: start: 20130118
  6. MAGNESIUM SULFATE [Concomitant]
     Indication: PROPHYLAXIS
     Dosage: UNK
     Route: 042
     Dates: start: 20130127, end: 20130313
  7. POTASSIUM CHLORIDE [Concomitant]
     Indication: PROPHYLAXIS
     Dosage: UNK
     Route: 042
     Dates: start: 20130128, end: 20130312
  8. PANTOPRAZOLE [Concomitant]
     Indication: PROPHYLAXIS AGAINST GASTROINTESTINAL ULCER
     Dosage: UNK
     Route: 048
     Dates: start: 20130202
  9. ONDANSETRON [Concomitant]
     Indication: PROPHYLAXIS OF NAUSEA AND VOMITING
     Dosage: UNK
     Route: 042
     Dates: start: 20130116, end: 20130305
  10. PERIDEX                            /00016001/ [Concomitant]
     Indication: INFECTION PROPHYLAXIS
     Dosage: UNK
     Route: 048
     Dates: start: 20130114
  11. OXYCODONE [Concomitant]
     Indication: PAIN IN EXTREMITY
     Dosage: UNK
     Route: 048
     Dates: start: 20130114
  12. OXYCODONE [Concomitant]
     Indication: BREAKTHROUGH PAIN
  13. MORPHINE SULFATE [Concomitant]
     Indication: ABDOMINAL PAIN
     Dosage: UNK
     Route: 042
     Dates: start: 20130224
  14. VALIUM                             /00017001/ [Concomitant]
     Indication: ANXIETY
     Dosage: UNK
     Route: 048
     Dates: start: 20130114
  15. SIMETHICONE [Concomitant]
     Indication: DYSPEPSIA
     Dosage: UNK
     Route: 048
     Dates: start: 20130116
  16. URSODIOL [Concomitant]
     Indication: PROPHYLAXIS
     Dosage: UNK
     Route: 048
     Dates: start: 20130209, end: 20130225
  17. LABETALOL [Concomitant]
     Indication: TACHYCARDIA
     Dosage: UNK
     Route: 048
     Dates: start: 20130216, end: 20130225
  18. DUONEB [Concomitant]
     Indication: DYSPNOEA
     Dosage: UNK
     Route: 055
     Dates: start: 20130205
  19. SOLUMEDROL [Concomitant]
     Indication: PREMEDICATION
     Dosage: UNK
     Route: 042
     Dates: start: 20130129
  20. SODIUM CHLORIDE [Concomitant]
     Indication: NASAL DRYNESS
     Dosage: UNK
     Route: 045
     Dates: start: 20130120, end: 20130302
  21. OLANZAPINE [Concomitant]
     Indication: NAUSEA
     Dosage: UNK
     Route: 048
     Dates: start: 20130204, end: 20130224
  22. OLANZAPINE [Concomitant]
     Indication: ANXIETY
  23. BENADRYL                           /00000402/ [Concomitant]
     Indication: PREMEDICATION
     Dosage: UNK
     Route: 042
     Dates: start: 20130125
  24. FENTANYL [Concomitant]
     Indication: BONE PAIN
     Dosage: UNK
     Route: 062
     Dates: start: 20130114
  25. OMEPRAZOLE [Concomitant]
     Indication: PROPHYLAXIS AGAINST GASTROINTESTINAL ULCER
     Dosage: UNK
     Route: 048
     Dates: start: 20130115
  26. ACYCLOVIR                          /00587301/ [Concomitant]
     Indication: HERPES VIRUS INFECTION
     Dosage: UNK
     Route: 048
     Dates: start: 20130202, end: 20130222
  27. CALCIUM GLUCONATE [Concomitant]
     Indication: HYPOCALCAEMIA
     Dosage: UNK
     Route: 042
     Dates: start: 20130117, end: 20130302
  28. CALCIUM GLUCONATE [Concomitant]
     Indication: HYPOALBUMINAEMIA
  29. TYLENOL                            /00020001/ [Concomitant]
     Indication: FEBRILE NEUTROPENIA
     Dosage: UNK
     Route: 048
     Dates: start: 20130130, end: 20130224
  30. DEMEROL [Concomitant]
     Indication: CHILLS
     Dosage: UNK
     Route: 048
     Dates: start: 20130201, end: 20130223
  31. READI-CAT [Concomitant]
     Indication: SCAN WITH CONTRAST
     Dosage: UNK
     Route: 048
     Dates: start: 20130224, end: 20130224

REACTIONS (2)
  - Pulmonary oedema [Unknown]
  - Hypokalaemia [Unknown]
